FAERS Safety Report 4489066-0 (Version None)
Quarter: 2004Q4

REPORT INFORMATION
  Report Type: 
  Country: None (occurrence: None)
  Receive Date: 20041029
  Receipt Date: 20041018
  Transmission Date: 20050328
  Serious: Yes (Death, Hospitalization)
  Sender: FDA-Public Use
  Company Number: BR-MERCK-0410BRA00395

PATIENT
  Age: 59 Year
  Sex: Male

DRUGS (2)
  1. VIOXX [Suspect]
     Indication: CANCER PAIN
     Route: 048
     Dates: start: 20021122, end: 20040118
  2. ADIPHENINE HYDROCHLORIDE AND DIPYRONE AND PROMETHAZINE [Concomitant]
     Indication: PAIN
     Route: 048
     Dates: start: 20021122, end: 20040118

REACTIONS (3)
  - ACUTE RESPIRATORY FAILURE [None]
  - CARDIO-RESPIRATORY ARREST [None]
  - LUNG NEOPLASM MALIGNANT [None]
